FAERS Safety Report 8358338-1 (Version None)
Quarter: 2012Q2

REPORT INFORMATION
  Report Type: 
  Country: None (occurrence: None)
  Receive Date: 20120514
  Receipt Date: 20110427
  Transmission Date: 20120825
  Serious: Yes (Hospitalization, Other)
  Sender: FDA-Public Use
  Company Number: US-ALEXION PHARMACEUTICALS INC.-A201100531

PATIENT
  Sex: Female

DRUGS (7)
  1. REVATIO [Concomitant]
     Indication: PULMONARY HYPERTENSION
     Dosage: UNK
  2. GABAPENTIN [Concomitant]
     Indication: NEURALGIA
     Dosage: UNK
  3. ZAROXOLYN [Concomitant]
     Dosage: UNK
  4. MORPHINE [Concomitant]
     Indication: PAIN
     Dosage: UNK
  5. LASIX [Concomitant]
     Dosage: UNK
  6. SOLIRIS [Suspect]
     Indication: PAROXYSMAL NOCTURNAL HAEMOGLOBINURIA
     Dosage: 900 MG, UNK
     Route: 042
     Dates: start: 20101021, end: 20101216
  7. TRENTAL [Concomitant]
     Dosage: UNK

REACTIONS (2)
  - DEEP VEIN THROMBOSIS [None]
  - PULMONARY EMBOLISM [None]
